FAERS Safety Report 5759167-5 (Version None)
Quarter: 2008Q2

REPORT INFORMATION
  Report Type: 
  Country: None (occurrence: None)
  Receive Date: 20080604
  Receipt Date: 20080523
  Transmission Date: 20081010
  Serious: Yes (Other)
  Sender: FDA-Public Use
  Company Number: US-PFIZER INC-2008030187

PATIENT
  Sex: Female
  Weight: 83.9 kg

DRUGS (9)
  1. LYRICA [Suspect]
     Indication: PAIN
     Route: 048
  2. LYRICA [Suspect]
     Indication: POST HERPETIC NEURALGIA
  3. VALTREX [Suspect]
     Dates: start: 20080401, end: 20080101
  4. TOPROL-XL [Concomitant]
  5. TRIAMTERENE AND HYDROCHLOROTHIAZIDE [Concomitant]
  6. ACCUPRIL [Concomitant]
  7. K-DUR [Concomitant]
  8. WARFARIN SODIUM [Concomitant]
  9. DARVOCET [Concomitant]

REACTIONS (5)
  - ABDOMINAL DISCOMFORT [None]
  - ANURIA [None]
  - FEAR [None]
  - MYDRIASIS [None]
  - VISUAL BRIGHTNESS [None]
